FAERS Safety Report 6740761-X (Version None)
Quarter: 2010Q2

REPORT INFORMATION
  Report Type: 
  Country: None (occurrence: None)
  Receive Date: 20100524
  Receipt Date: 20100517
  Transmission Date: 20101027
  Serious: Yes (Other)
  Sender: FDA-Public Use
  Company Number: 2010SP027410

PATIENT
  Age: 20 Year
  Sex: Female

DRUGS (1)
  1. SAPHRIS [Suspect]
     Indication: SCHIZOAFFECTIVE DISORDER
     Dosage: 5 MG QPM
     Dates: start: 20100226, end: 20100310

REACTIONS (3)
  - HALLUCINATION, AUDITORY [None]
  - HYPERSOMNIA [None]
  - UNRESPONSIVE TO STIMULI [None]
